FAERS Safety Report 7123631-7 (Version None)
Quarter: 2010Q4

REPORT INFORMATION
  Report Type: 
  Country: None (occurrence: None)
  Receive Date: 20101125
  Receipt Date: 20101110
  Transmission Date: 20110411
  Serious: Yes (Death, Life-Threatening, Hospitalization, Other)
  Sender: FDA-Public Use
  Company Number: FR-PFIZER INC-2010153713

PATIENT
  Age: 75 Year
  Sex: Male
  Weight: 70 kg

DRUGS (11)
  1. ARGATROBAN [Suspect]
     Indication: HEPARIN-INDUCED THROMBOCYTOPENIA
     Dosage: 012 UG/KG/MIN
     Route: 042
     Dates: start: 20101105, end: 20101110
  2. ARGATROBAN [Suspect]
     Dosage: UNK
     Route: 042
     Dates: start: 20101112, end: 20101113
  3. AMIODARONE [Concomitant]
     Indication: ARRHYTHMIA
     Dosage: UNK
     Route: 042
     Dates: start: 20101025, end: 20101114
  4. ULTIVA [Concomitant]
     Indication: SEDATION
     Dosage: UNK
     Route: 042
     Dates: start: 20101030, end: 20101114
  5. PROPOFOL [Concomitant]
     Indication: SEDATION
     Dosage: UNK
     Route: 042
     Dates: start: 20101031, end: 20101114
  6. HYDROCORTISONE HYDROGEN SUCCINATE [Concomitant]
     Indication: INFLAMMATION
     Dosage: UNK
     Route: 042
     Dates: start: 20101109, end: 20101114
  7. CLAVENTIN [Concomitant]
     Indication: INFECTION
     Dosage: 3 G, 2X/DAY
     Route: 042
     Dates: start: 20101103, end: 20101111
  8. NORADRENALINE [Concomitant]
     Indication: VASOPLEGIA SYNDROME
     Dosage: UNK
     Route: 042
     Dates: start: 20101031, end: 20101114
  9. VANCOMYCIN [Concomitant]
     Indication: INFECTION
     Dosage: UNK
     Route: 042
     Dates: start: 20101107, end: 20101114
  10. ASPEGIC 1000 [Concomitant]
     Indication: ANTICOAGULANT THERAPY
     Dosage: 100 MG, 1X/DAY
     Route: 048
     Dates: start: 20101031, end: 20101112
  11. KETAMINE [Concomitant]
     Indication: ANALGESIC THERAPY
     Dosage: UNK
     Route: 042
     Dates: start: 20101030, end: 20101113

REACTIONS (9)
  - FAECALITH [None]
  - GASTRIC ULCER HAEMORRHAGE [None]
  - GASTROINTESTINAL ISCHAEMIA [None]
  - HAEMATEMESIS [None]
  - MOUTH HAEMORRHAGE [None]
  - MULTI-ORGAN FAILURE [None]
  - RECTAL HAEMORRHAGE [None]
  - SHOCK [None]
  - SHOCK HAEMORRHAGIC [None]
